FAERS Safety Report 23114503 (Version 1)
Quarter: 2023Q4

REPORT INFORMATION
  Report Type: Spontaneous
  Country: US (occurrence: None)
  Receive Date: 20231026
  Receipt Date: 20231026
  Transmission Date: 20240110
  Serious: Yes (unspecified)
  Sender: FDA-Public Use
  Company Number: None

PATIENT
  Age: 52 Year
  Sex: Male

DRUGS (1)
  1. CABENUVA [Suspect]
     Active Substance: CABOTEGRAVIR\RILPIVIRINE

REACTIONS (7)
  - Inflammation [None]
  - Myalgia [None]
  - Gait disturbance [None]
  - Fall [None]
  - Nodule [None]
  - Injection site swelling [None]
  - Pustular psoriasis [None]

NARRATIVE: CASE EVENT DATE: 20231026
